FAERS Safety Report 10335543 (Version 1)
Quarter: 2014Q3

REPORT INFORMATION
  Report Type: Spontaneous
  Country: US (occurrence: US)
  Receive Date: 20140723
  Receipt Date: 20140723
  Transmission Date: 20150326
  Serious: No
  Sender: FDA-Public Use
  Company Number: US-UNITED THERAPEUTICS-UTC-047568

PATIENT
  Sex: Female

DRUGS (2)
  1. TRACLEER [Concomitant]
     Active Substance: BOSENTAN\BOSENTAN MONOHYDRATE
  2. TYVASO [Suspect]
     Active Substance: TREPROSTINIL
     Dosage: 18-54 MICROGRAMS
     Dates: start: 20130729

REACTIONS (7)
  - Asthenia [Unknown]
  - Nervousness [Unknown]
  - Nausea [Unknown]
  - Pyrexia [Unknown]
  - Feeling cold [Unknown]
  - Chills [Unknown]
  - Fatigue [Unknown]
